FAERS Safety Report 11276221 (Version 1)
Quarter: 2015Q3

REPORT INFORMATION
  Report Type: Spontaneous
  Country: CN (occurrence: CN)
  Receive Date: 20150716
  Receipt Date: 20150716
  Transmission Date: 20151125
  Serious: Yes (Hospitalization)
  Sender: FDA-Public Use
  Company Number: CN-PFIZER INC-2015226182

PATIENT
  Age: 79 Year
  Sex: Male
  Weight: 60 kg

DRUGS (2)
  1. VFEND [Suspect]
     Active Substance: VORICONAZOLE
     Indication: INFECTION
     Dosage: 200 MG, 2X/DAY
     Route: 041
     Dates: start: 20141218, end: 20141220
  2. VFEND [Suspect]
     Active Substance: VORICONAZOLE
     Indication: INFECTION
     Dosage: 200 MG, 2X/DAY
     Route: 048
     Dates: start: 20141220, end: 20141230

REACTIONS (7)
  - Xanthopsia [Recovering/Resolving]
  - Hallucination [Recovering/Resolving]
  - Affect lability [Recovering/Resolving]
  - Visual impairment [Recovering/Resolving]
  - Insomnia [Recovering/Resolving]
  - Abnormal behaviour [Recovering/Resolving]
  - Chloropsia [Recovering/Resolving]

NARRATIVE: CASE EVENT DATE: 20141220
